FAERS Safety Report 12472077 (Version 2)
Quarter: 2022Q1

REPORT INFORMATION
  Report Type: Report from Study
  Country: US (occurrence: US)
  Receive Date: 20160616
  Receipt Date: 20220121
  Transmission Date: 20220423
  Serious: Yes (Hospitalization, Other)
  Sender: FDA-Public Use
  Company Number: US-BIOGEN-2016BI00251958

PATIENT
  Sex: Female

DRUGS (1)
  1. TECFIDERA [Suspect]
     Active Substance: DIMETHYL FUMARATE
     Indication: Multiple sclerosis
     Route: 065
     Dates: start: 20131004, end: 2020

REACTIONS (7)
  - Seizure [Unknown]
  - Hand fracture [Unknown]
  - Hip fracture [Unknown]
  - Foot fracture [Unknown]
  - Traumatic intracranial haemorrhage [Unknown]
  - Concussion [Unknown]
  - Femur fracture [Unknown]

NARRATIVE: CASE EVENT DATE: 20140101
